FAERS Safety Report 20229410 (Version 1)
Quarter: 2021Q4

REPORT INFORMATION
  Report Type: Spontaneous
  Country: DE (occurrence: DE)
  Receive Date: 20211225
  Receipt Date: 20211225
  Transmission Date: 20220303
  Serious: Yes (Hospitalization, Other)
  Sender: FDA-Public Use
  Company Number: DE-NOVARTISPH-NVSC2021DE290604

PATIENT
  Age: 78 Year
  Sex: Male

DRUGS (6)
  1. GABAPENTIN [Suspect]
     Active Substance: GABAPENTIN
     Indication: Epilepsy
     Dosage: 300 MG TID
     Route: 065
     Dates: start: 2021, end: 2021
  2. GABAPENTIN [Suspect]
     Active Substance: GABAPENTIN
     Dosage: 300 MG TID
     Route: 065
     Dates: start: 2021, end: 202111
  3. GABAPENTIN [Suspect]
     Active Substance: GABAPENTIN
     Dosage: 400 MG TID
     Route: 065
     Dates: start: 202111
  4. LAMOTRIGINE [Suspect]
     Active Substance: LAMOTRIGINE
     Indication: Epilepsy
     Dosage: 50 MG BID
     Route: 065
     Dates: start: 2021, end: 202112
  5. LAMOTRIGINE [Suspect]
     Active Substance: LAMOTRIGINE
     Dosage: 100 MG BID
     Route: 065
     Dates: start: 202112
  6. VIMPAT [Suspect]
     Active Substance: LACOSAMIDE
     Indication: Epilepsy
     Dosage: UNK
     Route: 065
     Dates: start: 2021, end: 2021

REACTIONS (15)
  - Fall [Unknown]
  - Skin laceration [Unknown]
  - Seizure [Unknown]
  - Speech disorder [Not Recovered/Not Resolved]
  - Gait disturbance [Not Recovered/Not Resolved]
  - Disorientation [Not Recovered/Not Resolved]
  - Vision blurred [Not Recovered/Not Resolved]
  - Visual impairment [Not Recovered/Not Resolved]
  - Gait inability [Not Recovered/Not Resolved]
  - General physical health deterioration [Unknown]
  - Movement disorder [Unknown]
  - Anxiety [Unknown]
  - Dizziness [Not Recovered/Not Resolved]
  - Confusional state [Not Recovered/Not Resolved]
  - Pyrexia [Unknown]

NARRATIVE: CASE EVENT DATE: 20210101
